FAERS Safety Report 9040055 (Version 1)
Quarter: 2013Q1

REPORT INFORMATION
  Report Type: Report from Study
  Country: US (occurrence: US)
  Receive Date: 20130130
  Receipt Date: 20130130
  Transmission Date: 20140127
  Serious: No
  Sender: FDA-Public Use
  Company Number: US-ABBOTT-12P-163-0952240-00

PATIENT
  Age: 60 Year
  Sex: Male

DRUGS (3)
  1. HUMIRA 40 MG/0.8 ML PEN [Suspect]
     Indication: PSORIATIC ARTHROPATHY
     Dates: start: 20120517
  2. ARAVA [Concomitant]
     Indication: PRODUCT USED FOR UNKNOWN INDICATION
     Dosage: 20MG DAILY
  3. ASACOL [Concomitant]
     Indication: COLITIS
     Dosage: 3 TABLETS TWICE DAILY

REACTIONS (4)
  - Scratch [Recovering/Resolving]
  - Incorrect dose administered [Recovering/Resolving]
  - Haemorrhage [Recovering/Resolving]
  - Wrong technique in drug usage process [Recovering/Resolving]
